FAERS Safety Report 19627874 (Version 1)
Quarter: 2021Q3

REPORT INFORMATION
  Report Type: Spontaneous
  Country: DE (occurrence: DE)
  Receive Date: 20210729
  Receipt Date: 20210729
  Transmission Date: 20211014
  Serious: Yes (Other)
  Sender: FDA-Public Use
  Company Number: DE-PFIZER INC-2021887515

PATIENT
  Sex: Female
  Weight: 55 kg

DRUGS (7)
  1. AMLODIPIN VITABALANS [Concomitant]
     Dosage: 5 MILLIGRAM, QD
     Dates: start: 201307
  2. ASPIRIN N [Concomitant]
     Active Substance: ASPIRIN
     Dosage: 100 MILLIGRAM, QD
     Dates: start: 201707
  3. PANTOPRAZOLE [Suspect]
     Active Substance: PANTOPRAZOLE
     Dosage: 20 MILLIGRAM, QD
     Route: 065
     Dates: start: 202106
  4. CANDESARTAN ZENTIVA [Concomitant]
     Active Substance: CANDESARTAN CILEXETIL
     Dosage: 16 MILLIGRAM, QD
     Dates: start: 201307
  5. TRAMADOL LIBRAPHARM [Concomitant]
     Dosage: 50 MILLIGRAM, QD
     Dates: start: 201707
  6. ALDACTONE [Suspect]
     Active Substance: SPIRONOLACTONE
     Dosage: UNK UNK, QD
     Route: 065
     Dates: start: 202106
  7. METOHEXAL SUCC [Concomitant]
     Active Substance: METOPROLOL SUCCINATE
     Dosage: 47.5 MILLIGRAM, QD
     Route: 048
     Dates: start: 201107

REACTIONS (2)
  - Hepatitis [Recovering/Resolving]
  - Panic attack [Recovering/Resolving]

NARRATIVE: CASE EVENT DATE: 202106
